FAERS Safety Report 8819773 (Version 1)
Quarter: 2012Q4

REPORT INFORMATION
  Report Type: 
  Country: US (occurrence: US)
  Receive Date: 20121001
  Receipt Date: 20121001
  Transmission Date: 20130627
  Serious: Yes (Other)
  Sender: FDA-Public Use
  Company Number: US-ROCHE-1125614

PATIENT
  Sex: Male

DRUGS (4)
  1. HERCEPTIN [Suspect]
     Indication: LUNG NEOPLASM MALIGNANT
     Route: 065
  2. HERCEPTIN [Suspect]
     Indication: METASTASES TO LIVER
  3. TAXOL [Concomitant]
  4. GEMCITABINE [Concomitant]

REACTIONS (1)
  - Disease progression [Unknown]
